FAERS Safety Report 11884207 (Version 4)
Quarter: 2016Q2

REPORT INFORMATION
  Report Type: Spontaneous
  Country: IT (occurrence: IT)
  Receive Date: 20160103
  Receipt Date: 20160401
  Transmission Date: 20160815
  Serious: Yes (Other)
  Sender: FDA-Public Use
  Company Number: IT-TEVA-622744ISR

PATIENT
  Weight: 2.03 kg

DRUGS (3)
  1. CYCLOPHOSPHAMIDE 600 MG/M2 [Concomitant]
     Route: 064
  2. EPIRUBICIN [Suspect]
     Active Substance: EPIRUBICIN
     Indication: CHEMOTHERAPY
     Route: 064
  3. DEXAMETHASONE. [Interacting]
     Active Substance: DEXAMETHASONE
     Dosage: 12 MILLIGRAM DAILY;
     Route: 064

REACTIONS (4)
  - Ventricular hypokinesia [Unknown]
  - Drug interaction [Unknown]
  - Cardiotoxicity [Unknown]
  - Foetal exposure during pregnancy [Unknown]

NARRATIVE: CASE EVENT DATE: 20120404
